FAERS Safety Report 4625655-8 (Version None)
Quarter: 2005Q1

REPORT INFORMATION
  Report Type: 
  Country: None (occurrence: None)
  Receive Date: 20050330
  Receipt Date: 20050316
  Transmission Date: 20050727
  Serious: Yes (Hospitalization)
  Sender: FDA-Public Use
  Company Number: JP_050205857

PATIENT
  Age: 67 Year
  Sex: Male

DRUGS (2)
  1. GEMZAR [Suspect]
     Indication: LUNG ADENOCARCINOMA STAGE IV
     Dates: start: 20040601
  2. VINORELBINE TARTRATE [Concomitant]

REACTIONS (4)
  - CONDITION AGGRAVATED [None]
  - GOUT [None]
  - JOINT SWELLING [None]
  - PYREXIA [None]
